FAERS Safety Report 15838201 (Version 1)
Quarter: 2018Q4

REPORT INFORMATION
  Report Type: Spontaneous
  Country: US (occurrence: US)
  Receive Date: 20181224
  Receipt Date: 20181224
  Transmission Date: 20190205
  Serious: No
  Sender: FDA-Public Use
  Company Number: None

PATIENT
  Age: 12 Year
  Sex: Female

DRUGS (1)
  1. PROMACTA [Suspect]
     Active Substance: ELTROMBOPAG OLAMINE

REACTIONS (6)
  - Loss of consciousness [None]
  - Haematocrit decreased [None]
  - Dizziness [None]
  - Early adult transition [None]
  - Fatigue [None]
  - Haemoglobin decreased [None]

NARRATIVE: CASE EVENT DATE: 20181222
